FAERS Safety Report 8573066 (Version 3)
Quarter: 2013Q3

REPORT INFORMATION
  Report Type: Report from Study
  Country: US (occurrence: US)
  Receive Date: 20120522
  Receipt Date: 20130701
  Transmission Date: 20140515
  Serious: Yes (Hospitalization)
  Sender: FDA-Public Use
  Company Number: US-JNJFOC-20120511805

PATIENT
  Age: 10 Year
  Sex: Male
  Weight: 24.3 kg

DRUGS (5)
  1. REMICADE [Suspect]
     Indication: INFLAMMATORY BOWEL DISEASE
     Route: 042
     Dates: start: 20100916
  2. METHOTREXATE [Concomitant]
     Route: 065
  3. MULTIVIT [Concomitant]
     Route: 065
  4. KETOCONAZOLE [Concomitant]
     Route: 065
  5. PREVACID [Concomitant]
     Route: 065

REACTIONS (1)
  - Crohn^s disease [Recovered/Resolved]
